FAERS Safety Report 4629361-5 (Version None)
Quarter: 2005Q2

REPORT INFORMATION
  Report Type: 
  Country: None (occurrence: None)
  Receive Date: 20050405
  Receipt Date: 20050324
  Transmission Date: 20051028
  Serious: Yes (Life-Threatening, Hospitalization)
  Sender: FDA-Public Use
  Company Number: 2004006847

PATIENT
  Age: 73 Year
  Sex: Male

DRUGS (18)
  1. SULPERAZON (CEFOPERAZONE, SULBACTAM) [Suspect]
     Indication: PNEUMONIA
     Dosage: 1 GRAM (DAILY), INTRAVENOUS
     Dates: start: 20040117, end: 20040121
  2. UNASYN [Suspect]
     Indication: PNEUMONIA
     Dosage: 3 GRAM (DAILY), INTRAVENOUS
     Dates: start: 20040123, end: 20040123
  3. CLINDAMYCIN (CLINDAMYCIN) [Suspect]
     Indication: PNEUMONIA
     Dosage: 600 MG (DAILY), INTRAVENOUS
     Route: 042
     Dates: start: 20040117, end: 20040121
  4. CEFOZOPRAN HYDROCHLORIDE (CEFOZOPRAN HYDROCHLORIDE) [Suspect]
     Indication: PNEUMONIA
     Dosage: 1 GRAM (DAILY), INTRAVENOUS
     Dates: start: 20040121, end: 20040123
  5. CANDESARTAN CILEXETIL (CANDESARTAN  CILEXETIL) [Suspect]
     Indication: HYPERTENSION
     Dosage: 8 MG (DAILY), ORAL
     Dates: end: 20040126
  6. ASPIRIN [Suspect]
     Indication: CEREBRAL INFARCTION
     Dosage: 100 MG (DAILY), ORAL
     Route: 048
     Dates: end: 20040126
  7. TELITHROMYCIN (TELITHROMYCIN) [Concomitant]
  8. LEVOFLOXACIN [Concomitant]
  9. AMBROXOL HYDROCHLORIDE (AMBROXOL HYDROCHLORIDE) [Concomitant]
  10. LANSOPRAZOLE [Concomitant]
  11. NILVADIPINE (NILVADIPINE) [Concomitant]
  12. CARBOCISTEINE (CARBOCISTEINE) [Concomitant]
  13. MAGNESIUM OXIDE (MAGNESIUM OXIDE) [Concomitant]
  14. TAMSULOSIN HYDROCHLORIDE (TAMSULOSIN HYDROCHLORIDE) [Concomitant]
  15. VALISONE-G (GENTAMICIN SULFATE, BETAMETHASONE) [Concomitant]
  16. HYDROCORTISONE SODIUM SUCCINATE [Concomitant]
  17. DEXCHLORPHENIRAMINE MALEATE [Concomitant]
  18. ALL OTHER THERAPEUTIC PRODUCTS (ALL OTHER THERAPEUTIC PRODUCTS) [Concomitant]

REACTIONS (4)
  - ACUTE GENERALISED EXANTHEMATOUS PUSTULOSIS [None]
  - DRUG INEFFECTIVE [None]
  - EXCORIATION [None]
  - PNEUMONIA [None]
